FAERS Safety Report 10101784 (Version 1)
Quarter: 2014Q2

REPORT INFORMATION
  Report Type: Spontaneous
  Country: US (occurrence: None)
  Receive Date: 20140423
  Receipt Date: 20140423
  Transmission Date: 20141212
  Serious: Yes (Hospitalization)
  Sender: FDA-Public Use
  Company Number: None

PATIENT
  Age: 66 Year
  Sex: Female
  Weight: 83.3 kg

DRUGS (5)
  1. CEFEPIME [Suspect]
     Indication: CELLULITIS
     Dosage: Q12H, INTRAVENOUS
     Route: 042
     Dates: start: 20140402, end: 20140406
  2. INSULIN LISPRO SLIDING SCALE [Concomitant]
  3. PREDNISOLONE EYE DROPS 2 GTTS [Concomitant]
  4. VALACVCLOVIR 500 MG [Concomitant]
  5. CARVEDILOL 3.125 MG [Concomitant]

REACTIONS (1)
  - Metabolic encephalopathy [None]
